FAERS Safety Report 5795306-8 (Version None)
Quarter: 2008Q2

REPORT INFORMATION
  Report Type: 
  Country: None (occurrence: None)
  Receive Date: 20080630
  Receipt Date: 20080618
  Transmission Date: 20081010
  Serious: Yes (Other)
  Sender: FDA-Public Use
  Company Number: US-PFIZER INC-2008052844

PATIENT
  Sex: Female
  Weight: 68.9 kg

DRUGS (3)
  1. CHANTIX [Suspect]
     Indication: SMOKING CESSATION THERAPY
     Route: 048
  2. LIPITOR [Concomitant]
  3. TYLENOL [Concomitant]

REACTIONS (2)
  - SINUS DISORDER [None]
  - SWOLLEN TONGUE [None]
